FAERS Safety Report 7327471-5 (Version None)
Quarter: 2011Q1

REPORT INFORMATION
  Report Type: 
  Country: None (occurrence: None)
  Receive Date: 20110303
  Receipt Date: 20110223
  Transmission Date: 20110831
  Serious: Yes (Hospitalization)
  Sender: FDA-Public Use
  Company Number: US-BIOGENIDEC-2010BI000314

PATIENT
  Sex: Male

DRUGS (4)
  1. FIORICET [Concomitant]
  2. TRAMADOL [Concomitant]
  3. TYSABRI [Suspect]
     Route: 042
     Dates: start: 20110106
  4. TYSABRI [Suspect]
     Indication: MULTIPLE SCLEROSIS
     Route: 042
     Dates: start: 20080424, end: 20091017

REACTIONS (11)
  - PAIN [None]
  - DRUG INEFFECTIVE [None]
  - MUSCULOSKELETAL STIFFNESS [None]
  - TREMOR [None]
  - ANXIETY [None]
  - HYPOAESTHESIA [None]
  - INTESTINAL PERFORATION [None]
  - MULTIPLE SCLEROSIS RELAPSE [None]
  - LUMBAR RADICULOPATHY [None]
  - MUSCLE TIGHTNESS [None]
  - HEADACHE [None]
